FAERS Safety Report 7443245-9 (Version None)
Quarter: 2011Q2

REPORT INFORMATION
  Report Type: 
  Country: None (occurrence: None)
  Receive Date: 20110428
  Receipt Date: 20110421
  Transmission Date: 20111010
  Serious: Yes (Hospitalization)
  Sender: FDA-Public Use
  Company Number: B0715064A

PATIENT
  Sex: Male
  Weight: 51 kg

DRUGS (13)
  1. AZUNOL [Concomitant]
     Route: 002
     Dates: start: 20071212, end: 20071212
  2. TACROLIMUS HYDRATE [Concomitant]
     Dosage: 2MG PER DAY
     Route: 048
     Dates: start: 20080213, end: 20080314
  3. ELASE [Concomitant]
     Route: 002
     Dates: start: 20071212, end: 20071212
  4. FLUDARA [Suspect]
     Indication: CORD BLOOD TRANSPLANT THERAPY
     Dosage: 38MG PER DAY
     Route: 042
     Dates: start: 20071206, end: 20071210
  5. TACROLIMUS HYDRATE [Concomitant]
     Dosage: 2MG PER DAY
     Route: 048
     Dates: start: 20071213, end: 20080115
  6. CIPROFLOXACIN HCL [Concomitant]
     Dosage: 600MG PER DAY
     Route: 048
     Dates: start: 20071207, end: 20080110
  7. TACROLIMUS HYDRATE [Concomitant]
     Dosage: 5MG PER DAY
     Route: 048
     Dates: start: 20080116, end: 20080212
  8. CALONAL [Concomitant]
     Route: 048
     Dates: start: 20071207
  9. RAMELTEON [Concomitant]
     Dosage: .3MG PER DAY
     Route: 042
     Dates: start: 20071205, end: 20071212
  10. ALKERAN [Suspect]
     Indication: CORD BLOOD TRANSPLANT THERAPY
     Dosage: 62MGM2 PER DAY
     Route: 042
     Dates: start: 20071211, end: 20071212
  11. URSO 250 [Concomitant]
     Dosage: 600MG PER DAY
     Route: 048
     Dates: start: 20071207
  12. AZUNOL [Concomitant]
     Dosage: 5MG PER DAY
     Route: 061
     Dates: start: 20071212, end: 20071212
  13. FUNGUARD [Concomitant]
     Dosage: 50MG PER DAY
     Route: 042
     Dates: start: 20071206, end: 20080207

REACTIONS (1)
  - FEBRILE NEUTROPENIA [None]
